FAERS Safety Report 7955147-X (Version None)
Quarter: 2011Q4

REPORT INFORMATION
  Report Type: 
  Country: None (occurrence: None)
  Receive Date: 20111202
  Receipt Date: 20111117
  Transmission Date: 20120403
  Serious: Yes (Hospitalization)
  Sender: FDA-Public Use
  Company Number: BR-MEDIMMUNE-MEDI-0012529

PATIENT
  Sex: Male
  Weight: 8.4 kg

DRUGS (6)
  1. FERROUS SULFATE TAB [Concomitant]
     Route: 048
     Dates: start: 20100127
  2. AMOXICILLIN [Concomitant]
     Dates: start: 20101001, end: 20101101
  3. DIPYRONE TAB [Concomitant]
     Route: 048
     Dates: start: 20101001, end: 20101001
  4. GEVITAL [Concomitant]
     Route: 048
     Dates: start: 20100301
  5. SYNAGIS [Suspect]
     Route: 030
     Dates: start: 20100619, end: 20100619
  6. FUROSEMIDE [Concomitant]
     Dates: start: 20100204

REACTIONS (6)
  - PYREXIA [None]
  - NASOPHARYNGITIS [None]
  - FATIGUE [None]
  - CYANOSIS [None]
  - BRONCHIOLITIS [None]
  - ANAEMIA [None]
